FAERS Safety Report 6866895-7 (Version None)
Quarter: 2010Q3

REPORT INFORMATION
  Report Type: 
  Country: None (occurrence: None)
  Receive Date: 20100721
  Receipt Date: 20100721
  Transmission Date: 20110219
  Serious: No
  Sender: FDA-Public Use
  Company Number: None

PATIENT
  Age: 78 Year
  Sex: Male
  Weight: 83.9154 kg

DRUGS (1)
  1. CLONIDINE [Suspect]
     Indication: HYPERTENSION
     Dosage: 1 TAB TWICE DAILY MOUTH
     Route: 048
     Dates: start: 20100613, end: 20100701

REACTIONS (1)
  - BLOOD PRESSURE INCREASED [None]
